FAERS Safety Report 21925541 (Version 3)
Quarter: 2023Q1

REPORT INFORMATION
  Report Type: Report from Study
  Country: ES (occurrence: ES)
  Receive Date: 20230130
  Receipt Date: 20230206
  Transmission Date: 20230418
  Serious: Yes (Other)
  Sender: FDA-Public Use
  Company Number: ES-GLAXOSMITHKLINE-ES2023GSK008091

PATIENT

DRUGS (21)
  1. BELANTAMAB MAFODOTIN [Suspect]
     Active Substance: BELANTAMAB MAFODOTIN
     Indication: Plasma cell myeloma refractory
     Dosage: 190 MG, CYC
     Route: 042
     Dates: start: 20220608, end: 20220608
  2. BELANTAMAB MAFODOTIN [Suspect]
     Active Substance: BELANTAMAB MAFODOTIN
     Dosage: 140 MG, CYC
     Route: 042
     Dates: start: 20220901
  3. POMALIDOMIDE [Suspect]
     Active Substance: POMALIDOMIDE
     Indication: Plasma cell myeloma refractory
     Dosage: 4 MG, CYC
     Route: 048
     Dates: start: 20220608, end: 20220614
  4. POMALIDOMIDE [Suspect]
     Active Substance: POMALIDOMIDE
     Dosage: 3 MG, CYC
     Route: 048
     Dates: start: 20220705
  5. DEXAMETHASONE [Suspect]
     Active Substance: DEXAMETHASONE
     Indication: Plasma cell myeloma refractory
     Dosage: 40 MG, CYC
     Route: 048
     Dates: start: 20220608
  6. OMEPRAZOLE [Concomitant]
     Active Substance: OMEPRAZOLE
     Indication: Gastrointestinal disorder prophylaxis
     Dosage: 20 MG, QD
     Route: 048
     Dates: start: 20190101
  7. EZETIMIBE [Concomitant]
     Active Substance: EZETIMIBE
     Indication: Hyperlipidaemia
     Dosage: 10 MG, QD
     Route: 048
     Dates: start: 20220101
  8. CLONAZEPAM [Concomitant]
     Active Substance: CLONAZEPAM
     Indication: Arthropathy
     Dosage: 0.5 MG, BID
     Route: 048
     Dates: start: 20220914
  9. ASPIRIN [Concomitant]
     Active Substance: ASPIRIN
     Indication: Thrombosis prophylaxis
     Dosage: 1 DF, QD
     Route: 048
     Dates: start: 20220927
  10. ASPIRIN [Concomitant]
     Active Substance: ASPIRIN
     Dosage: 100 MG, QD
     Route: 048
     Dates: start: 20220927
  11. ACETYLCYSTEINE [Concomitant]
     Active Substance: ACETYLCYSTEINE
     Indication: Respiratory tract infection
     Dosage: UNK
     Route: 048
     Dates: start: 202210
  12. ACETYLCYSTEINE [Concomitant]
     Active Substance: ACETYLCYSTEINE
     Indication: Pyrexia
     Dosage: 600 MG, QD
     Route: 048
     Dates: start: 20230114, end: 20230118
  13. LEVOFLOXACIN [Concomitant]
     Active Substance: LEVOFLOXACIN
     Indication: Respiratory tract infection
     Dosage: 500 MG, QD
     Route: 048
     Dates: start: 20221019, end: 20221026
  14. CHOLESTYRAMINE [Concomitant]
     Active Substance: CHOLESTYRAMINE
     Indication: Diarrhoea
     Dosage: UNK, PRN
     Route: 048
     Dates: start: 20221123
  15. BUDESONIDE\FORMOTEROL FUMARATE DIHYDRATE [Concomitant]
     Active Substance: BUDESONIDE\FORMOTEROL FUMARATE DIHYDRATE
     Indication: Pyrexia
     Dosage: 2 PUFF(S), Q12H
     Route: 055
     Dates: start: 20230114
  16. AMOXICILLIN [Concomitant]
     Active Substance: AMOXICILLIN
     Indication: Otitis media
     Dosage: 750 MG, TID
     Route: 048
     Dates: start: 20230111, end: 20230117
  17. DEFLAZACORT [Concomitant]
     Active Substance: DEFLAZACORT
     Indication: Otitis media
     Dosage: 20 MG, BID
     Route: 048
     Dates: start: 20230111, end: 20230112
  18. DEFLAZACORT [Concomitant]
     Active Substance: DEFLAZACORT
     Dosage: 20 MG, QD
     Route: 048
     Dates: start: 20230113, end: 20230114
  19. ACETAMINOPHEN [Concomitant]
     Active Substance: ACETAMINOPHEN
     Indication: Otitis media
     Dosage: 1 G, Q8H
     Route: 048
     Dates: start: 20230111, end: 202301
  20. MEROPENEM [Concomitant]
     Active Substance: MEROPENEM
     Indication: Pyrexia
     Dosage: 1 G,Q6H
     Route: 048
     Dates: start: 20230114, end: 20230114
  21. ASCORBIC ACID + CODEIN + PARACETAMOL [Concomitant]
     Indication: Respiratory tract infection
     Dosage: 650/10/500 MG, BID
     Route: 048
     Dates: start: 202210

REACTIONS (1)
  - Aplasia pure red cell [Not Recovered/Not Resolved]

NARRATIVE: CASE EVENT DATE: 20230117
